FAERS Safety Report 11406033 (Version 1)
Quarter: 2015Q3

REPORT INFORMATION
  Report Type: Spontaneous
  Country: US (occurrence: US)
  Receive Date: 20150821
  Receipt Date: 20150821
  Transmission Date: 20151125
  Serious: Yes (Other)
  Sender: FDA-Public Use
  Company Number: US-NOVOPROD-421059

PATIENT
  Age: 73 Year
  Sex: Male
  Weight: 91.61 kg

DRUGS (4)
  1. METFORMIN [Concomitant]
     Active Substance: METFORMIN HYDROCHLORIDE
     Indication: TYPE 2 DIABETES MELLITUS
  2. VICTOZA [Suspect]
     Active Substance: LIRAGLUTIDE
     Indication: TYPE 2 DIABETES MELLITUS
     Dosage: 1.2 MG, QD
     Route: 058
     Dates: start: 2012, end: 20140825
  3. PRAVACHOL [Concomitant]
     Active Substance: PRAVASTATIN SODIUM
     Indication: HYPERTRIGLYCERIDAEMIA
  4. PRANDIN? [Concomitant]
     Indication: TYPE 2 DIABETES MELLITUS

REACTIONS (1)
  - Pancreatitis [Recovered/Resolved]

NARRATIVE: CASE EVENT DATE: 201408
